FAERS Safety Report 22013179 (Version 1)
Quarter: 2023Q1

REPORT INFORMATION
  Report Type: Spontaneous
  Country: US (occurrence: US)
  Receive Date: 20230220
  Receipt Date: 20230220
  Transmission Date: 20230417
  Serious: No
  Sender: FDA-Public Use
  Company Number: US-BAYER-2023A016169

PATIENT
  Sex: Male

DRUGS (1)
  1. KERENDIA [Suspect]
     Active Substance: FINERENONE
     Dosage: UNK
     Dates: start: 202302

REACTIONS (2)
  - Blood creatinine increased [None]
  - Glomerular filtration rate decreased [None]

NARRATIVE: CASE EVENT DATE: 20230201
